FAERS Safety Report 8582029-5 (Version None)
Quarter: 2012Q3

REPORT INFORMATION
  Report Type: 
  Country: None (occurrence: None)
  Receive Date: 20120809
  Receipt Date: 20120802
  Transmission Date: 20120928
  Serious: Yes (Hospitalization, Other)
  Sender: FDA-Public Use
  Company Number: JP-PFIZER INC-2012174276

PATIENT
  Age: 53 Year
  Sex: Male
  Weight: 65 kg

DRUGS (8)
  1. TORISEL [Suspect]
     Indication: METASTATIC RENAL CELL CARCINOMA
     Dosage: 25 MG, WEEKLY
     Route: 041
     Dates: start: 20120508, end: 20120710
  2. NAPROXEN [Concomitant]
     Indication: TUMOUR ASSOCIATED FEVER
     Dosage: 100 MG, 3X/DAY
     Route: 048
     Dates: start: 20120625, end: 20120717
  3. CELEBREX [Concomitant]
     Indication: TUMOUR ASSOCIATED FEVER
     Dosage: 200 MG, 2X/DAY
     Route: 048
     Dates: start: 20120703, end: 20120717
  4. LANSOPRAZOLE [Concomitant]
     Indication: PROPHYLAXIS AGAINST GASTROINTESTINAL ULCER
     Dosage: 15 MG, 1X/DAY
     Route: 048
     Dates: start: 20120326, end: 20120717
  5. TORISEL [Suspect]
     Indication: METASTASES TO LIVER
  6. CELEBREX [Concomitant]
     Indication: METASTATIC RENAL CELL CARCINOMA
  7. TORISEL [Suspect]
     Indication: METASTASES TO LUNG
  8. FEBURIC [Concomitant]
     Indication: HYPERURICAEMIA
     Dosage: 20 MG, 1X/DAY
     Route: 048
     Dates: start: 20120605, end: 20120717

REACTIONS (5)
  - GASTROINTESTINAL HAEMORRHAGE [None]
  - HAEMORRHAGIC ANAEMIA [None]
  - INTERSTITIAL LUNG DISEASE [None]
  - STOMATITIS [None]
  - FUNGAL INFECTION [None]
